FAERS Safety Report 17374428 (Version 4)
Quarter: 2022Q4

REPORT INFORMATION
  Report Type: Spontaneous
  Country: US (occurrence: US)
  Receive Date: 20200205
  Receipt Date: 20221219
  Transmission Date: 20230113
  Serious: Yes (Other)
  Sender: FDA-Public Use
  Company Number: US-PFIZER INC-2020048680

PATIENT
  Age: 70 Year
  Sex: Female

DRUGS (1)
  1. PRISTIQ EXTENDED-RELEASE [Suspect]
     Active Substance: DESVENLAFAXINE SUCCINATE
     Dosage: 50 MG, UNK

REACTIONS (4)
  - Dementia [Unknown]
  - Hypoacusis [Unknown]
  - Emotional disorder [Unknown]
  - Anxiety [Unknown]
